FAERS Safety Report 13581740 (Version 1)
Quarter: 2017Q2

REPORT INFORMATION
  Report Type: Spontaneous
  Country: US (occurrence: US)
  Receive Date: 20170525
  Receipt Date: 20170525
  Transmission Date: 20170830
  Serious: No
  Sender: FDA-Public Use
  Company Number: US-TARO-2016TAR00428

PATIENT
  Age: 64 Year
  Sex: Female
  Weight: 86.17 kg

DRUGS (3)
  1. TOPICORT [Suspect]
     Active Substance: DESOXIMETASONE
     Dosage: 1 DOSAGE UNITS, 1X/DAY
     Dates: end: 201604
  2. UNSPECIFIED VITAMINS [Concomitant]
     Active Substance: VITAMINS
  3. TOPICORT [Suspect]
     Active Substance: DESOXIMETASONE
     Indication: DERMATITIS
     Dosage: 1 DOSAGE UNITS, 2X/DAY
     Route: 061
     Dates: start: 201508, end: 201604

REACTIONS (2)
  - Inappropriate schedule of drug administration [Recovered/Resolved]
  - Hypothyroidism [Not Recovered/Not Resolved]

NARRATIVE: CASE EVENT DATE: 201604
